FAERS Safety Report 18336590 (Version 1)
Quarter: 2020Q4

REPORT INFORMATION
  Report Type: Report from Study
  Country: TW (occurrence: TW)
  Receive Date: 20201002
  Receipt Date: 20201002
  Transmission Date: 20210113
  Serious: Yes (Hospitalization)
  Sender: FDA-Public Use
  Company Number: TW-AMGEN-TWNCT2019192334

PATIENT
  Age: 41 Year
  Sex: Male
  Weight: 54 kg

DRUGS (13)
  1. HI-BESTON [Concomitant]
     Dosage: 5 MILLIGRAM
     Route: 048
     Dates: start: 20180419
  2. CALCIUM CARBONATE. [Concomitant]
     Active Substance: CALCIUM CARBONATE
     Dosage: 2 UNK
     Route: 048
     Dates: start: 20190717
  3. RASITOL [FUROSEMIDE] [Suspect]
     Active Substance: FUROSEMIDE
     Indication: PRODUCT USED FOR UNKNOWN INDICATION
     Dosage: 40 MILLIGRAM, BID
     Route: 048
     Dates: start: 20181009, end: 20191114
  4. CALCITRIOL. [Concomitant]
     Active Substance: CALCITRIOL
     Dosage: 1 UNK
     Route: 048
     Dates: start: 20190909
  5. IRON;SUCROSE [Concomitant]
     Dosage: 5 MILLILITER (2 PERCENT)
     Route: 042
     Dates: start: 20190705, end: 20190906
  6. ETELCALCETIDE [Suspect]
     Active Substance: ETELCALCETIDE
     Indication: HYPERPARATHYROIDISM SECONDARY
     Dosage: UNK
     Route: 065
     Dates: start: 20190626
  7. VISTARIL [Concomitant]
     Active Substance: HYDROXYZINE PAMOATE
     Dosage: 25 MILLIGRAM
     Route: 048
     Dates: start: 20180419, end: 20190918
  8. NESP [Concomitant]
     Active Substance: DARBEPOETIN ALFA
     Dosage: 0.5 MILLILITER
     Route: 042
     Dates: start: 20190715, end: 20190929
  9. FOLIC ACID. [Concomitant]
     Active Substance: FOLIC ACID
     Dosage: 5 MILLIGRAM
     Route: 048
     Dates: start: 20180419
  10. MYCOMB [GRAMICIDIN;NEOMYCIN;NYSTATIN;TRIAMCINOLONE ACETONIDE] [Concomitant]
     Dosage: 1 UNK
     Route: 061
     Dates: start: 20181009
  11. FEBURIC [Concomitant]
     Active Substance: FEBUXOSTAT
     Dosage: 0.5 UNK
     Route: 048
     Dates: start: 20180522
  12. ETELCALCETIDE [Suspect]
     Active Substance: ETELCALCETIDE
     Dosage: UNK
     Route: 065
     Dates: start: 20191125
  13. RIVOTRIL [Concomitant]
     Active Substance: CLONAZEPAM
     Dosage: 1  UNK
     Route: 048
     Dates: start: 20180419

REACTIONS (1)
  - Hypotension [Recovered/Resolved]

NARRATIVE: CASE EVENT DATE: 20191115
